FAERS Safety Report 9780913 (Version 1)
Quarter: 2013Q4

REPORT INFORMATION
  Report Type: Spontaneous
  Country: GB (occurrence: None)
  Receive Date: 20131220
  Receipt Date: 20131220
  Transmission Date: 20140711
  Serious: Yes (Other)
  Sender: FDA-Public Use
  Company Number: AUR-APL-2013-10560

PATIENT
  Age: 47 Year
  Sex: Female

DRUGS (2)
  1. CITALOPRAM [Suspect]
     Indication: ANXIETY
     Dates: start: 2013
  2. CITALOPRAM [Suspect]
     Indication: RESTLESS LEGS SYNDROME
     Dates: start: 2013

REACTIONS (6)
  - Anxiety [None]
  - Restless legs syndrome [None]
  - Fatigue [None]
  - Asthenia [None]
  - Drug ineffective [None]
  - Impaired work ability [None]
